FAERS Safety Report 10497814 (Version 2)
Quarter: 2014Q4

REPORT INFORMATION
  Report Type: Spontaneous
  Country: FR (occurrence: FR)
  Receive Date: 20141006
  Receipt Date: 20141103
  Transmission Date: 20150528
  Serious: Yes (Other)
  Sender: FDA-Public Use
  Company Number: FR-SA-2014SA132937

PATIENT
  Age: 84 Year
  Sex: Female

DRUGS (5)
  1. CIFLOX [Concomitant]
     Active Substance: CIPROFLOXACIN
  2. VANCOMYCINE [Concomitant]
     Active Substance: VANCOMYCIN
     Dates: end: 20140812
  3. ROCEPHINE [Concomitant]
     Active Substance: CEFTRIAXONE SODIUM
  4. RIFADINE [Suspect]
     Active Substance: RIFAMPIN
     Route: 042
     Dates: start: 20140812, end: 20140820
  5. FUCIDINE [Suspect]
     Active Substance: FUSIDIC ACID
     Route: 048
     Dates: start: 20140812, end: 20140819

REACTIONS (2)
  - Jaundice [Recovered/Resolved]
  - Cholestasis [Recovered/Resolved]

NARRATIVE: CASE EVENT DATE: 20140818
